FAERS Safety Report 10308892 (Version 1)
Quarter: 2014Q3

REPORT INFORMATION
  Report Type: Report from Study
  Country: BR (occurrence: BR)
  Receive Date: 20140716
  Receipt Date: 20140716
  Transmission Date: 20150326
  Serious: Yes (Other)
  Sender: FDA-Public Use
  Company Number: PHHY2014BR087136

PATIENT
  Age: 74 Year
  Sex: Female
  Weight: 68.5 kg

DRUGS (6)
  1. ATENSINE [Concomitant]
     Indication: CARDIAC DISORDER
     Dosage: 0.100 MG, UNK
  2. PARACETAMOL [Concomitant]
     Active Substance: ACETAMINOPHEN
     Indication: PAIN
     Dosage: 750 MG, UNK
  3. TAPAZOL [Concomitant]
     Indication: THYROID DISORDER
     Dosage: 10 MG, UNK
  4. DIOVAN HCT [Suspect]
     Active Substance: HYDROCHLOROTHIAZIDE\VALSARTAN
     Indication: HYPERTENSION
     Dosage: 1 DF (160/12.5MG), QD (IN THE MORNING)
     Route: 048
  5. ATENOLOL. [Concomitant]
     Active Substance: ATENOLOL
     Indication: CARDIAC DISORDER
     Dosage: 25 MG, UNK
  6. OMEPRAZOLE. [Concomitant]
     Active Substance: OMEPRAZOLE
     Indication: GASTRIC DISORDER
     Dosage: 20 MG, UNK

REACTIONS (16)
  - Cardiomegaly [Recovered/Resolved]
  - Musculoskeletal discomfort [Recovered/Resolved]
  - Limb deformity [Recovered/Resolved]
  - Joint dislocation [Recovered/Resolved]
  - Blood pressure increased [Recovered/Resolved]
  - Joint injury [Recovered/Resolved]
  - Haemorrhage [Recovered/Resolved]
  - Skin haemorrhage [Recovered/Resolved]
  - Nodule [Recovered/Resolved]
  - Back injury [Recovered/Resolved]
  - Fall [Recovered/Resolved]
  - Spinal disorder [Recovered/Resolved]
  - Head injury [Recovered/Resolved]
  - Cardiac disorder [Recovered/Resolved]
  - Skin discolouration [Recovered/Resolved]
  - Vein disorder [Recovered/Resolved]

NARRATIVE: CASE EVENT DATE: 201312
